FAERS Safety Report 6538983-6 (Version None)
Quarter: 2010Q1

REPORT INFORMATION
  Report Type: 
  Country: None (occurrence: None)
  Receive Date: 20100115
  Receipt Date: 20100112
  Transmission Date: 20100710
  Serious: Yes (Hospitalization)
  Sender: FDA-Public Use
  Company Number: IT-BRISTOL-MYERS SQUIBB COMPANY-14931216

PATIENT
  Age: 30 Year
  Sex: Female

DRUGS (6)
  1. BLEOMYCIN SULFATE [Suspect]
     Indication: DIFFUSE LARGE B-CELL LYMPHOMA
     Dosage: INTERRUPTED ON 18JUN09.
     Route: 042
     Dates: start: 20090325, end: 20090618
  2. ENDOXAN BAXTER [Suspect]
     Indication: DIFFUSE LARGE B-CELL LYMPHOMA
     Dosage: ENDOXAN BAXTER INTERRUPTED ON 18JUN09.
     Route: 042
     Dates: start: 20090325, end: 20090618
  3. ETOPOSIDE EBEWE [Suspect]
     Indication: DIFFUSE LARGE B-CELL LYMPHOMA
     Dosage: INTERRUPTED ON 18JUN09.
     Route: 042
     Dates: start: 20090325, end: 20090618
  4. VINCRISTINA [Suspect]
     Indication: DIFFUSE LARGE B-CELL LYMPHOMA
     Dosage: INTERRUPTED ON 18JUN09.
     Route: 042
     Dates: start: 20090325, end: 20090618
  5. MABTHERA [Suspect]
     Indication: DIFFUSE LARGE B-CELL LYMPHOMA
     Dosage: INTERRUPTED ON 18JUN09.
     Route: 042
     Dates: start: 20090325, end: 20090618
  6. DOXORUBICINA EBEWE [Suspect]
     Indication: DIFFUSE LARGE B-CELL LYMPHOMA
     Dosage: INTERRUPTED ON 18JUN09.
     Route: 042
     Dates: start: 20090325, end: 20090618

REACTIONS (4)
  - AGRANULOCYTOSIS [None]
  - BRONCHOPNEUMONIA [None]
  - FEBRILE NEUTROPENIA [None]
  - HYPERPYREXIA [None]
